FAERS Safety Report 24053798 (Version 1)
Quarter: 2024Q3

REPORT INFORMATION
  Report Type: Report from Study
  Country: BR (occurrence: BR)
  Receive Date: 20240705
  Receipt Date: 20240705
  Transmission Date: 20241017
  Serious: Yes (Life-Threatening, Hospitalization, Disabling, Other)
  Sender: CELLTRION
  Company Number: BR-CELLTRION INC.-2024BR015926

PATIENT

DRUGS (1)
  1. INFLIXIMAB [Suspect]
     Active Substance: INFLIXIMAB
     Indication: Crohn^s disease
     Dosage: UNK
     Route: 042
     Dates: start: 20221019

REACTIONS (8)
  - Procedural intestinal perforation [Unknown]
  - Tracheostomy [Unknown]
  - Haemodialysis [Unknown]
  - Coma [Unknown]
  - Colostomy [Unknown]
  - Gait inability [Unknown]
  - Wheelchair user [Unknown]
  - Abdominal distension [Unknown]
